FAERS Safety Report 12446885 (Version 2)
Quarter: 2016Q2

REPORT INFORMATION
  Report Type: Report from Study
  Country: US (occurrence: US)
  Receive Date: 20160608
  Receipt Date: 20160620
  Transmission Date: 20160815
  Serious: Yes (Other)
  Sender: FDA-Public Use
  Company Number: PHEH2016US013741

PATIENT
  Sex: Female

DRUGS (1)
  1. GILENYA [Suspect]
     Active Substance: FINGOLIMOD HYDROCHLORIDE
     Indication: MULTIPLE SCLEROSIS
     Dosage: 0.5 MG, QD
     Route: 048
     Dates: start: 20150501

REACTIONS (11)
  - Central nervous system lesion [Not Recovered/Not Resolved]
  - Confusional state [Not Recovered/Not Resolved]
  - Peripheral swelling [Not Recovered/Not Resolved]
  - Panic attack [Not Recovered/Not Resolved]
  - Multiple sclerosis [Unknown]
  - Anxiety [Not Recovered/Not Resolved]
  - Muscle spasms [Unknown]
  - Blood pressure increased [Unknown]
  - Stress [Not Recovered/Not Resolved]
  - Memory impairment [Unknown]
  - Amnesia [Not Recovered/Not Resolved]
